FAERS Safety Report 20161861 (Version 1)
Quarter: 2021Q4

REPORT INFORMATION
  Report Type: Spontaneous
  Country: US (occurrence: US)
  Receive Date: 20211208
  Receipt Date: 20211208
  Transmission Date: 20220303
  Serious: No
  Sender: FDA-Public Use
  Company Number: US-009507513-2112USA001429

PATIENT
  Age: 22 Year
  Sex: Male

DRUGS (5)
  1. CUBICIN [Suspect]
     Active Substance: DAPTOMYCIN
     Indication: Enterococcal infection
  2. CUBICIN [Suspect]
     Active Substance: DAPTOMYCIN
     Indication: Stenotrophomonas infection
  3. CUBICIN [Suspect]
     Active Substance: DAPTOMYCIN
     Indication: Klebsiella infection
  4. NOXAFIL [Suspect]
     Active Substance: POSACONAZOLE
     Indication: Coccidioidomycosis
  5. NOXAFIL [Suspect]
     Active Substance: POSACONAZOLE
     Indication: Histoplasmosis

REACTIONS (1)
  - Product use in unapproved indication [Unknown]
